FAERS Safety Report 20197842 (Version 1)
Quarter: 2021Q4

REPORT INFORMATION
  Report Type: Spontaneous
  Country: BE (occurrence: BE)
  Receive Date: 20211217
  Receipt Date: 20211217
  Transmission Date: 20220303
  Serious: Yes (Hospitalization, Other)
  Sender: FDA-Public Use
  Company Number: BE-STRIDES ARCOLAB LIMITED-2021SP031188

PATIENT
  Age: 55 Year
  Sex: Female
  Weight: 49 kg

DRUGS (5)
  1. MYCOPHENOLATE MOFETIL [Suspect]
     Active Substance: MYCOPHENOLATE MOFETIL
     Indication: Renal transplant
     Dosage: UNK
     Route: 065
     Dates: start: 2018
  2. MYCOPHENOLATE MOFETIL [Suspect]
     Active Substance: MYCOPHENOLATE MOFETIL
     Dosage: UNK
     Route: 065
  3. TACROLIMUS [Suspect]
     Active Substance: TACROLIMUS
     Indication: Renal transplant
     Dosage: UNK
     Route: 065
     Dates: start: 2018
  4. TACROLIMUS [Suspect]
     Active Substance: TACROLIMUS
     Dosage: TROUGH LEVELS WERE DECREASED AT 4-5 NG/ML , UNK
     Route: 065
  5. TACROLIMUS [Suspect]
     Active Substance: TACROLIMUS
     Dosage: UNK
     Route: 065

REACTIONS (11)
  - Malnutrition [Recovered/Resolved]
  - Hepatic cyst infection [Recovered/Resolved]
  - Liver abscess [Recovered/Resolved]
  - Sepsis [Recovered/Resolved]
  - Weight decreased [Recovered/Resolved]
  - Enterococcal bacteraemia [Recovered/Resolved]
  - Pseudomonal bacteraemia [Recovered/Resolved]
  - Klebsiella bacteraemia [Recovered/Resolved]
  - Pneumococcal bacteraemia [Recovered/Resolved]
  - Stenotrophomonas bacteraemia [Recovered/Resolved]
  - Citrobacter bacteraemia [Recovered/Resolved]

NARRATIVE: CASE EVENT DATE: 20180801
